FAERS Safety Report 16765899 (Version 1)
Quarter: 2019Q3

REPORT INFORMATION
  Report Type: Spontaneous
  Country: JP (occurrence: JP)
  Receive Date: 20190903
  Receipt Date: 20190903
  Transmission Date: 20191005
  Serious: Yes (Life-Threatening, Hospitalization)
  Sender: FDA-Public Use
  Company Number: JP-TEVA-2019-JP-1102207

PATIENT
  Age: 77 Year
  Sex: Female

DRUGS (8)
  1. ZOLPIDEM [Interacting]
     Active Substance: ZOLPIDEM TARTRATE
     Route: 065
  2. DULOXETINE. [Interacting]
     Active Substance: DULOXETINE
     Dosage: SINGLE DOSE
     Route: 048
  3. ROSUVASTATIN. [Concomitant]
     Active Substance: ROSUVASTATIN
     Route: 065
  4. ETHYL LOFLAZEPATE [Concomitant]
     Active Substance: ETHYL LOFLAZEPATE
     Route: 065
  5. WARFARIN [Suspect]
     Active Substance: WARFARIN
     Route: 065
  6. BENIDIPINE [Concomitant]
     Active Substance: BENIDIPINE
     Route: 065
  7. TELMISARTAN. [Concomitant]
     Active Substance: TELMISARTAN
     Route: 065
  8. FAMOTIDINE. [Concomitant]
     Active Substance: FAMOTIDINE
     Route: 065

REACTIONS (5)
  - Hyponatraemia [Recovered/Resolved]
  - Movement disorder [Recovered/Resolved]
  - Inappropriate antidiuretic hormone secretion [Recovered/Resolved]
  - Altered state of consciousness [Recovered/Resolved]
  - Drug interaction [Recovered/Resolved]
